FAERS Safety Report 10278144 (Version 2)
Quarter: 2014Q3

REPORT INFORMATION
  Report Type: Report from Study
  Country: PK (occurrence: PK)
  Receive Date: 20140704
  Receipt Date: 20140711
  Transmission Date: 20150326
  Serious: Yes (Death, Hospitalization)
  Sender: FDA-Public Use
  Company Number: PHHY2014PK082120

PATIENT
  Age: 60 Year
  Sex: Female

DRUGS (1)
  1. ACLASTA [Suspect]
     Active Substance: ZOLEDRONIC ACID
     Indication: OSTEOPOROSIS
     Dosage: 5 MG PER 100 ML, ONCE A YEAR
     Route: 042
     Dates: start: 20130410

REACTIONS (4)
  - Death [Fatal]
  - Pain [Unknown]
  - Gait disturbance [Unknown]
  - Decreased appetite [Unknown]

NARRATIVE: CASE EVENT DATE: 20130411
